FAERS Safety Report 25144979 (Version 1)
Quarter: 2025Q2

REPORT INFORMATION
  Report Type: Spontaneous
  Country: DE (occurrence: DE)
  Receive Date: 20250401
  Receipt Date: 20250401
  Transmission Date: 20250717
  Serious: Yes (Hospitalization)
  Sender: Haleon PLC
  Company Number: DE-002147023-NVSC2025DE047096

PATIENT
  Sex: Female

DRUGS (4)
  1. DICLOFENAC [Suspect]
     Active Substance: DICLOFENAC
     Indication: Axial spondyloarthritis
     Route: 065
     Dates: start: 20231115, end: 20240115
  2. NAPROXEN [Concomitant]
     Active Substance: NAPROXEN
     Indication: Axial spondyloarthritis
     Dosage: 125 MG (1 DAY PER WEEK)
     Route: 065
     Dates: start: 20220706, end: 20240101
  3. SECUKINUMAB [Suspect]
     Active Substance: SECUKINUMAB
     Indication: Axial spondyloarthritis
     Dosage: 150 MG, Q4W
     Route: 065
     Dates: start: 20220501
  4. IBUPROFEN [Concomitant]
     Active Substance: IBUPROFEN
     Indication: Axial spondyloarthritis
     Dosage: 150 MG (1 DAY PER WEEK)
     Route: 065
     Dates: start: 20240201

REACTIONS (1)
  - Teratoma benign [Recovered/Resolved]

NARRATIVE: CASE EVENT DATE: 20240919
